FAERS Safety Report 17724471 (Version 1)
Quarter: 2020Q2

REPORT INFORMATION
  Report Type: Spontaneous
  Country: GB (occurrence: GB)
  Receive Date: 20200429
  Receipt Date: 20200429
  Transmission Date: 20200714
  Serious: Yes (Hospitalization)
  Sender: FDA-Public Use
  Company Number: GB-MYLANLABS-2020M1041840

PATIENT
  Age: 35 Year
  Sex: Female

DRUGS (4)
  1. VITAMIN D                          /07503901/ [Concomitant]
     Active Substance: VITAMIN D NOS
     Dosage: UNK
  2. TRANEXAMIC ACID. [Suspect]
     Active Substance: TRANEXAMIC ACID
     Indication: ABORTION SPONTANEOUS
     Dosage: UNK
     Route: 042
     Dates: end: 20200130
  3. FERROUS FUMARATE [Concomitant]
     Active Substance: FERROUS FUMARATE
     Dosage: UNK
  4. TRANEXAMIC ACID. [Suspect]
     Active Substance: TRANEXAMIC ACID
     Indication: ABORTION SPONTANEOUS
     Dosage: 2 GRAM, QD
     Route: 048
     Dates: start: 20200131, end: 20200210

REACTIONS (4)
  - Aphasia [Unknown]
  - Migraine [Unknown]
  - Embolic stroke [Not Recovered/Not Resolved]
  - Confusional state [Unknown]

NARRATIVE: CASE EVENT DATE: 20200210
